FAERS Safety Report 5099835-4 (Version None)
Quarter: 2006Q3

REPORT INFORMATION
  Report Type: 
  Country: None (occurrence: None)
  Receive Date: 20060906
  Receipt Date: 20060906
  Transmission Date: 20061208
  Serious: No
  Sender: FDA-Public Use
  Company Number: None

PATIENT
  Age: 13 Year
  Sex: Male
  Weight: 56.6996 kg

DRUGS (1)
  1. ALLERCLEAR-   KIRKLAND [Suspect]
     Indication: MULTIPLE ALLERGIES
     Dosage: 10MG   ONCE DAILY   ORALLY
     Route: 048
     Dates: start: 20060904

REACTIONS (2)
  - ABDOMINAL PAIN UPPER [None]
  - SOMNOLENCE [None]
